FAERS Safety Report 18595419 (Version 5)
Quarter: 2021Q1

REPORT INFORMATION
  Report Type: Report from Study
  Country: US (occurrence: US)
  Receive Date: 20201209
  Receipt Date: 20210212
  Transmission Date: 20210419
  Serious: Yes (Other)
  Sender: FDA-Public Use
  Company Number: US-ULTRAGENYX PHARMACEUTICAL INC.-US-UGNX-20-00256

PATIENT
  Age: 12 Year
  Sex: Male
  Weight: 45.8 kg

DRUGS (16)
  1. TRIHEPTANOIN. [Suspect]
     Active Substance: TRIHEPTANOIN
     Indication: GLYCOGEN STORAGE DISEASE TYPE I
     Dosage: 0.25 G/KG
     Dates: start: 20201020
  2. TRIHEPTANOIN. [Suspect]
     Active Substance: TRIHEPTANOIN
     Dosage: 0.5 GM/KG
     Dates: start: 20201027
  3. TRIHEPTANOIN. [Suspect]
     Active Substance: TRIHEPTANOIN
     Dosage: 1 GM/KG
     Dates: start: 20201116
  4. GLYCOSADE [Concomitant]
     Indication: PRODUCT USED FOR UNKNOWN INDICATION
     Route: 048
  5. TRIHEPTANOIN. [Suspect]
     Active Substance: TRIHEPTANOIN
     Dosage: 0.75 GM/KG
     Dates: start: 20201121
  6. CALCIUM [Concomitant]
     Active Substance: CALCIUM
     Indication: SUPPLEMENTATION THERAPY
     Dates: start: 201510
  7. DEXTROSE. [Concomitant]
     Active Substance: DEXTROSE
     Indication: PRODUCT USED FOR UNKNOWN INDICATION
     Route: 048
  8. TRIHEPTANOIN. [Suspect]
     Active Substance: TRIHEPTANOIN
     Dosage: 1 G/KG
     Dates: start: 20201110
  9. TRIHEPTANOIN. [Suspect]
     Active Substance: TRIHEPTANOIN
     Dosage: 1 GM/KG
     Dates: start: 20201124
  10. EMLA [Concomitant]
     Active Substance: LIDOCAINE\PRILOCAINE
     Indication: PRODUCT USED FOR UNKNOWN INDICATION
     Dates: start: 20181016
  11. FLONASE [Concomitant]
     Active Substance: FLUTICASONE PROPIONATE
     Indication: PRODUCT USED FOR UNKNOWN INDICATION
     Route: 045
     Dates: start: 20190904
  12. TRIHEPTANOIN. [Suspect]
     Active Substance: TRIHEPTANOIN
     Dosage: 0.75 GM/KG
     Dates: start: 20201104
  13. ZOFRAN [Concomitant]
     Active Substance: ONDANSETRON HYDROCHLORIDE
     Indication: PRODUCT USED FOR UNKNOWN INDICATION
     Dosage: 4MG/5ML
     Route: 048
  14. CORNSTARCH [Concomitant]
     Indication: PRODUCT USED FOR UNKNOWN INDICATION
     Dosage: UNIT DOSE: 25 G OR 33 G
     Route: 048
  15. VITAMIN D [Concomitant]
     Active Substance: VITAMIN D NOS
     Indication: PRODUCT USED FOR UNKNOWN INDICATION
     Route: 048
     Dates: start: 201910
  16. PROBIOTIC GUMMIES [Concomitant]
     Indication: PRODUCT USED FOR UNKNOWN INDICATION
     Route: 048
     Dates: start: 201910

REACTIONS (2)
  - Drug interaction [Recovered/Resolved]
  - Hypoglycaemia [Recovered/Resolved]

NARRATIVE: CASE EVENT DATE: 20201115
